FAERS Safety Report 4934103-X (Version None)
Quarter: 2006Q1

REPORT INFORMATION
  Report Type: 
  Country: None (occurrence: None)
  Receive Date: 20060303
  Receipt Date: 20060221
  Transmission Date: 20060701
  Serious: Yes (Hospitalization)
  Sender: FDA-Public Use
  Company Number: 2006027498

PATIENT
  Sex: Female

DRUGS (2)
  1. ACCUPRIL [Suspect]
     Indication: ILL-DEFINED DISORDER
  2. CELEBREX [Suspect]
     Indication: ILL-DEFINED DISORDER

REACTIONS (1)
  - KNEE OPERATION [None]
